FAERS Safety Report 6132947-2 (Version None)
Quarter: 2009Q1

REPORT INFORMATION
  Report Type: 
  Country: None (occurrence: None)
  Receive Date: 20090326
  Receipt Date: 20090318
  Transmission Date: 20090719
  Serious: Yes (Other)
  Sender: FDA-Public Use
  Company Number: PHBS2007NZ09140

PATIENT
  Sex: Male

DRUGS (5)
  1. CLOZARIL [Suspect]
     Dosage: UNK, UNK
     Route: 065
     Dates: start: 20070514, end: 20090101
  2. CLOZARIL [Suspect]
     Dosage: 50 MG MANE, 225 MG NOCTE
     Route: 065
     Dates: start: 20070531
  3. CLOZARIL [Suspect]
     Dosage: 100 MG
     Dates: end: 20090101
  4. OLANZAPINE [Concomitant]
     Route: 065
  5. OLANZAPINE [Concomitant]
     Dosage: 5 MG/D
     Route: 065
     Dates: start: 20070531

REACTIONS (4)
  - ELECTROCARDIOGRAM QT PROLONGED [None]
  - SALIVARY HYPERSECRETION [None]
  - SEDATION [None]
  - TACHYCARDIA [None]
